FAERS Safety Report 19426598 (Version 3)
Quarter: 2021Q3

REPORT INFORMATION
  Report Type: Report from Study
  Country: CN (occurrence: CN)
  Receive Date: 20210617
  Receipt Date: 20210707
  Transmission Date: 20211014
  Serious: Yes (Death, Hospitalization)
  Sender: FDA-Public Use
  Company Number: CN-TAKEDA-2021TUS018790

PATIENT
  Age: 52 Year
  Sex: Male
  Weight: 78 kg

DRUGS (13)
  1. DEXAMETHASONE. [Concomitant]
     Active Substance: DEXAMETHASONE
     Dosage: 6.75 MILLIGRAM, 2/WEEK
     Route: 048
     Dates: start: 20210409
  2. OMEPRAZOLE. [Concomitant]
     Active Substance: OMEPRAZOLE
     Indication: PROPHYLAXIS
     Dosage: 20 MILLIGRAM, QOD
     Route: 048
     Dates: start: 20210202, end: 20210408
  3. ACICLOVIR [Concomitant]
     Active Substance: ACYCLOVIR
     Indication: PROPHYLAXIS
     Dosage: 0.2 GRAM, TID
     Route: 048
     Dates: start: 20210316
  4. CHIDAMIDE [Concomitant]
     Active Substance: TUCIDINOSTAT
     Indication: PLASMA CELL MYELOMA
     Dosage: 15 MILLIGRAM, 2/WEEK
     Route: 048
     Dates: start: 20210409
  5. OMEPRAZOLE. [Concomitant]
     Active Substance: OMEPRAZOLE
     Dosage: 20 MILLIGRAM, 2/WEEK
     Route: 048
     Dates: start: 20210409
  6. METFORMIN HYDROCHLORIDE. [Concomitant]
     Active Substance: METFORMIN HYDROCHLORIDE
     Indication: DIABETES MELLITUS
     Dosage: 0.5 GRAM, BID
     Route: 048
     Dates: start: 201909
  7. SODIUM BICARBONATE. [Concomitant]
     Active Substance: SODIUM BICARBONATE
     Indication: PROPHYLAXIS
  8. COMPOUND SULFAMETHOXAZOLE [Concomitant]
     Active Substance: SULFAMETHOXAZOLE
     Indication: INFECTION
     Dosage: 0.4 GRAM, 2/WEEK
     Route: 048
     Dates: start: 20210202, end: 202103
  9. DEXAMETHASONE. [Concomitant]
     Active Substance: DEXAMETHASONE
     Indication: PLASMA CELL MYELOMA
     Dosage: 1.5 MILLIGRAM, QOD
     Route: 048
     Dates: start: 20210202, end: 20210408
  10. LENALIDOMIDE [Concomitant]
     Active Substance: LENALIDOMIDE
     Indication: PLASMA CELL MYELOMA
     Dosage: 25 MILLIGRAM
     Route: 048
     Dates: start: 202009
  11. SODIUM BICARBONATE. [Concomitant]
     Active Substance: SODIUM BICARBONATE
     Indication: VOMITING
     Dosage: 0.5 GRAM, TID
     Route: 048
     Dates: start: 20210202
  12. MECOBALAMIN [Concomitant]
     Active Substance: METHYLCOBALAMIN
     Indication: PROPHYLAXIS
     Dosage: 0.2 GRAM, TID
     Route: 048
     Dates: start: 20210316
  13. IXAZOMIB [Suspect]
     Active Substance: IXAZOMIB
     Indication: PLASMA CELL MYELOMA
     Dosage: 4 MILLIGRAM, 1/WEEK
     Route: 048
     Dates: start: 20210205, end: 202105

REACTIONS (2)
  - Platelet count decreased [Fatal]
  - Nasopharyngitis [Not Recovered/Not Resolved]

NARRATIVE: CASE EVENT DATE: 20210221
